FAERS Safety Report 25184451 (Version 1)
Quarter: 2025Q2

REPORT INFORMATION
  Report Type: Spontaneous
  Country: CA (occurrence: CA)
  Receive Date: 20250410
  Receipt Date: 20250410
  Transmission Date: 20250717
  Serious: Yes (Other)
  Sender: PFIZER
  Company Number: CA-PFIZER INC-202400025030

PATIENT
  Age: 81 Year
  Sex: Male

DRUGS (1)
  1. VYNDAMAX [Suspect]
     Active Substance: TAFAMIDIS
     Indication: Cardiac amyloidosis
     Dosage: 61 MG, 1X/DAY
     Route: 048
     Dates: start: 20231215

REACTIONS (7)
  - Left ventricular hypertrophy [Unknown]
  - Vision blurred [Not Recovered/Not Resolved]
  - Aortic valve sclerosis [Unknown]
  - Dyspnoea exertional [Unknown]
  - Diastolic dysfunction [Unknown]
  - Left atrial dilatation [Unknown]
  - Right atrial enlargement [Unknown]

NARRATIVE: CASE EVENT DATE: 20240101
